FAERS Safety Report 6192524-4 (Version None)
Quarter: 2009Q2

REPORT INFORMATION
  Report Type: 
  Country: None (occurrence: None)
  Receive Date: 20090518
  Receipt Date: 20090513
  Transmission Date: 20091009
  Serious: Yes (Life-Threatening, Hospitalization)
  Sender: FDA-Public Use
  Company Number: PHEH2009US04859

PATIENT
  Sex: Female
  Weight: 59.864 kg

DRUGS (12)
  1. RECLAST [Suspect]
     Indication: OSTEOPOROSIS
     Dosage: 5 MG, ONCE/SINGLE
     Route: 042
     Dates: start: 20090331
  2. METHOTREXATE [Concomitant]
     Indication: RHEUMATOID ARTHRITIS
     Dosage: 2.5
  3. STEROIDS NOS [Concomitant]
  4. LEVOTHYROXINE SODIUM [Concomitant]
     Dosage: 75 MG, UNK
  5. PRILOSEC [Concomitant]
     Dosage: 20 MG, UNK
  6. FOLIC ACID [Concomitant]
     Dosage: 1 MG, UNK
  7. CALTRATE [Concomitant]
     Dosage: 600 MG, UNK
  8. ASCORBIC ACID [Concomitant]
     Dosage: 500 MG, UNK
  9. ASPIRIN [Concomitant]
     Dosage: 81 MG, UNK
  10. ENALAPRIL [Concomitant]
     Dosage: 10 MG, BID
  11. CRESTOR [Concomitant]
     Dosage: 5 MG, UNK
  12. AMLODIPINE [Concomitant]
     Dosage: 5 MG, UNK

REACTIONS (4)
  - CHEST PAIN [None]
  - PAIN IN EXTREMITY [None]
  - PYREXIA [None]
  - SYNCOPE [None]
